FAERS Safety Report 24080846 (Version 1)
Quarter: 2024Q3

REPORT INFORMATION
  Report Type: Spontaneous
  Country: US (occurrence: US)
  Receive Date: 20240711
  Receipt Date: 20240711
  Transmission Date: 20241017
  Serious: No
  Sender: PURDUE
  Company Number: US-PURDUE-USA-2024-0310697

PATIENT
  Sex: Female

DRUGS (1)
  1. DRONABINOL [Suspect]
     Active Substance: DRONABINOL
     Indication: Product used for unknown indication
     Dosage: 5 MILLIGRAM, UNK
     Route: 048

REACTIONS (2)
  - Product storage error [Unknown]
  - Product temperature excursion issue [Unknown]
